FAERS Safety Report 14829557 (Version 2)
Quarter: 2018Q2

REPORT INFORMATION
  Report Type: Spontaneous
  Country: DE (occurrence: DE)
  Receive Date: 20180430
  Receipt Date: 20180502
  Transmission Date: 20180711
  Serious: Yes (Hospitalization)
  Sender: FDA-Public Use
  Company Number: DE-ALLERGAN-1823381US

PATIENT
  Age: 71 Year
  Sex: Male

DRUGS (4)
  1. ACETYLSALICYLIC ACID [Interacting]
     Active Substance: ASPIRIN
     Indication: PRODUCT USED FOR UNKNOWN INDICATION
     Dosage: 100 MG, QAM (1-0-0-0)
     Route: 065
  2. RAMIPRIL. [Concomitant]
     Active Substance: RAMIPRIL
     Dosage: 5 MG, QAM (1-0-0-0)
     Route: 065
  3. OMEPRAZOL [Concomitant]
     Active Substance: OMEPRAZOLE
     Dosage: 40 MG, QAM (1-0-0-0)
     Route: 065
  4. CITALOPRAM HYDROBROMIDE - BP [Suspect]
     Active Substance: CITALOPRAM HYDROBROMIDE
     Indication: PRODUCT USED FOR UNKNOWN INDICATION
     Dosage: 20 MG, QAM (1-0-0-0)
     Route: 065

REACTIONS (4)
  - Labelled drug-drug interaction medication error [Unknown]
  - Hemiparesis [Unknown]
  - Fall [Unknown]
  - Dysarthria [Unknown]
